FAERS Safety Report 24532232 (Version 1)
Quarter: 2024Q4

REPORT INFORMATION
  Report Type: Spontaneous
  Country: US (occurrence: US)
  Receive Date: 20241022
  Receipt Date: 20241022
  Transmission Date: 20250115
  Serious: Yes (Other)
  Sender: SPECGX
  Company Number: US-SPECGX-T202401952

PATIENT
  Sex: Male

DRUGS (1)
  1. ACETAMINOPHEN\HYDROCODONE [Suspect]
     Active Substance: ACETAMINOPHEN\HYDROCODONE
     Indication: Pain
     Dosage: UNK
     Route: 065
     Dates: start: 2013

REACTIONS (10)
  - Condition aggravated [Unknown]
  - Drug dependence [Unknown]
  - Euphoric mood [Unknown]
  - Bedridden [Unknown]
  - Asthenia [Unknown]
  - Insomnia [Unknown]
  - Drug withdrawal syndrome [Unknown]
  - Product solubility abnormal [Unknown]
  - Product physical consistency issue [Unknown]
  - Therapeutic response shortened [Unknown]

NARRATIVE: CASE EVENT DATE: 20170101
